FAERS Safety Report 10176646 (Version 1)
Quarter: 2014Q2

REPORT INFORMATION
  Report Type: Spontaneous
  Country: US (occurrence: US)
  Receive Date: 20140516
  Receipt Date: 20140516
  Transmission Date: 20141212
  Serious: Yes (Other)
  Sender: FDA-Public Use
  Company Number: US-PURDUE-USA-2014-0113835

PATIENT
  Age: 34 Year
  Sex: Female
  Weight: 83.9 kg

DRUGS (4)
  1. OXYCONTIN (NDA 22-272) [Suspect]
     Indication: PAIN
     Dosage: UNK, QID
     Route: 048
     Dates: start: 201404
  2. INSULIN [Concomitant]
     Indication: TYPE 1 DIABETES MELLITUS
  3. CELEXA                             /00582602/ [Concomitant]
     Indication: DEPRESSION
  4. CHEMOTHERAPY [Concomitant]
     Indication: BREAST CANCER

REACTIONS (2)
  - Diabetic neuropathy [Unknown]
  - Abasia [Unknown]
